FAERS Safety Report 5766944-3 (Version None)
Quarter: 2008Q2

REPORT INFORMATION
  Report Type: 
  Country: None (occurrence: None)
  Receive Date: 20080612
  Receipt Date: 20080603
  Transmission Date: 20081010
  Serious: Yes (Other)
  Sender: FDA-Public Use
  Company Number: US-JNJFOC-20080601211

PATIENT
  Sex: Female

DRUGS (8)
  1. DOXORUBICIN HCL [Suspect]
     Route: 042
  2. DOXORUBICIN HCL [Suspect]
     Indication: NON-HODGKIN'S LYMPHOMA
     Dosage: EVERY 2 WEEKS
     Route: 042
  3. RITUXAN [Suspect]
     Indication: NON-HODGKIN'S LYMPHOMA
     Dosage: EVERY 2 WEEKS
     Route: 065
  4. COREG [Concomitant]
     Indication: CARDIAC FAILURE CONGESTIVE
     Route: 065
  5. PLAVIX [Concomitant]
     Indication: CARDIAC FAILURE CONGESTIVE
     Route: 065
  6. HYDRALAZINE HCL [Concomitant]
     Indication: CARDIAC FAILURE CONGESTIVE
     Route: 065
  7. PROTONIX [Concomitant]
     Indication: CARDIAC FAILURE CONGESTIVE
     Route: 065
  8. PEROCET [Concomitant]
     Indication: PAIN
     Dosage: 1-2 TABLETS EVERY 6HOURS
     Route: 065

REACTIONS (3)
  - CATHETER RELATED COMPLICATION [None]
  - CHILLS [None]
  - PAIN [None]
